FAERS Safety Report 16981186 (Version 5)
Quarter: 2019Q4

REPORT INFORMATION
  Report Type: Spontaneous
  Country: US (occurrence: US)
  Receive Date: 20191031
  Receipt Date: 20191223
  Transmission Date: 20200122
  Serious: Yes (Hospitalization)
  Sender: FDA-Public Use
  Company Number: US-ACTELION-A-US2019-197517

PATIENT
  Age: 34 Year
  Sex: Female
  Weight: 43.08 kg

DRUGS (2)
  1. ELIQUIS [Concomitant]
     Active Substance: APIXABAN
  2. VELETRI [Suspect]
     Active Substance: EPOPROSTENOL
     Indication: PULMONARY HYPERTENSION
     Dosage: 18.5 NG/KG, PER MIN
     Route: 042

REACTIONS (6)
  - Hospitalisation [Unknown]
  - Catheter site erythema [Recovered/Resolved]
  - Myalgia [Unknown]
  - Catheter site pruritus [Recovering/Resolving]
  - Skin infection [Unknown]
  - Fatigue [Unknown]

NARRATIVE: CASE EVENT DATE: 20191111
